FAERS Safety Report 8805409 (Version 2)
Quarter: 2015Q1

REPORT INFORMATION
  Report Type: Report from Study
  Country: US (occurrence: US)
  Receive Date: 20120924
  Receipt Date: 20150315
  Transmission Date: 20150721
  Serious: Yes (Death)
  Sender: FDA-Public Use
  Company Number: US-ROCHE-1124335

PATIENT
  Age: 70 Year
  Sex: Male

DRUGS (10)
  1. LEUCOVORIN [Concomitant]
     Active Substance: LEUCOVORIN
     Dosage: HE RECEIVED LEUCOVORIN ON 14/FEB/2007, 27/FEB/2007, 19/MAR/2007, 3/APR/2007, 14/APR/2007
     Route: 065
     Dates: start: 20070214
  2. 5-FLUOROURACIL [Concomitant]
     Active Substance: FLUOROURACIL
     Dosage: HE RECEIVED 5-FU 2000 MG ON 28/FEB/2007, 19/MAR/2007, 20/MAR/2007, 03/APR/2007, 04/APR/2007, 14/APR/
     Route: 065
     Dates: start: 20070227
  3. BENADRYL [Concomitant]
     Active Substance: DIPHENHYDRAMINE HYDROCHLORIDE
     Route: 065
     Dates: start: 20070430
  4. AVASTIN [Suspect]
     Active Substance: BEVACIZUMAB
     Indication: METASTASES TO LIVER
  5. ZOFRAN [Concomitant]
     Active Substance: ONDANSETRON HYDROCHLORIDE
     Dosage: HE RECEIVED ZOFRAN ON, 16/FEB/2007, 14/FEB/2007, 27/FEB/2007, 28/FEB/2007, 1/MAR/2007, 19/MAR/2007,
     Route: 065
     Dates: start: 20070205
  6. AVASTIN [Suspect]
     Active Substance: BEVACIZUMAB
     Indication: GASTRIC CANCER
     Dosage: HE RECEIVED NEXT DOSE ON 27/FEB/2007, 14/MAR/2007, 19/MAR/2007, 03/APR/2007, 04/APR/2007,14/APR/2007
     Route: 042
     Dates: start: 20070214
  7. DEXAMETHASONE. [Concomitant]
     Active Substance: DEXAMETHASONE
     Route: 065
  8. 5-FLUOROURACIL [Concomitant]
     Active Substance: FLUOROURACIL
     Dosage: HE RECEIVED 5-FU 800 MG ON 15/FEB/2007, 30/APR/2007
     Route: 065
     Dates: start: 20070214
  9. ATROPINE [Concomitant]
     Active Substance: ATROPINE
     Route: 065
     Dates: start: 20070403
  10. CPT-11 [Concomitant]
     Active Substance: IRINOTECAN
     Dosage: HE RECEIVED CPT-11 ON 14/FEB/2007, 27/FEB/2007, 19/MAR/2007, 3/APR/2007, 4/APR/2007, 14/APR/2007, 30
     Route: 065
     Dates: start: 20070214

REACTIONS (9)
  - Respiratory tract congestion [Unknown]
  - Nausea [Unknown]
  - Vomiting [Unknown]
  - Anorectal disorder [Unknown]
  - Death [Fatal]
  - Constipation [Unknown]
  - Rectal haemorrhage [Unknown]
  - Appetite disorder [Unknown]
  - Proctalgia [Unknown]

NARRATIVE: CASE EVENT DATE: 200801
